FAERS Safety Report 19173789 (Version 1)
Quarter: 2021Q2

REPORT INFORMATION
  Report Type: Spontaneous
  Country: BR (occurrence: BR)
  Receive Date: 20210423
  Receipt Date: 20210423
  Transmission Date: 20210717
  Serious: Yes (Other)
  Sender: FDA-Public Use
  Company Number: BR-JNJFOC-20210428901

PATIENT
  Age: 21 Year
  Sex: Female

DRUGS (3)
  1. SILDENAFIL. [Concomitant]
     Active Substance: SILDENAFIL
     Indication: PULMONARY ARTERIAL HYPERTENSION
     Route: 048
  2. BOSENTANA [Suspect]
     Active Substance: BOSENTAN
     Indication: PULMONARY ARTERIAL HYPERTENSION
     Route: 065
     Dates: start: 201312, end: 2019
  3. BOSENTANA [Suspect]
     Active Substance: BOSENTAN
     Route: 065

REACTIONS (6)
  - Condition aggravated [Unknown]
  - Nausea [Unknown]
  - Dizziness [Unknown]
  - Vomiting [Unknown]
  - Cardiac disorder [Unknown]
  - Fatigue [Unknown]

NARRATIVE: CASE EVENT DATE: 202101
